FAERS Safety Report 8274283-4 (Version None)
Quarter: 2012Q2

REPORT INFORMATION
  Report Type: 
  Country: None (occurrence: None)
  Receive Date: 20120411
  Receipt Date: 20120411
  Transmission Date: 20120825
  Serious: No
  Sender: FDA-Public Use
  Company Number: None

PATIENT
  Sex: Female
  Weight: 83.914 kg

DRUGS (1)
  1. BOTOX [Suspect]
     Indication: LACRIMATION INCREASED
     Dosage: 1 UNIT
     Route: 030
     Dates: start: 20120402, end: 20120402

REACTIONS (1)
  - EYELID PTOSIS [None]
